FAERS Safety Report 14723057 (Version 1)
Quarter: 2018Q2

REPORT INFORMATION
  Report Type: Spontaneous
  Country: US (occurrence: US)
  Receive Date: 20180405
  Receipt Date: 20180405
  Transmission Date: 20180711
  Serious: Yes (Other)
  Sender: FDA-Public Use
  Company Number: US-TEVA-2018-US-877308

PATIENT
  Age: 48 Year
  Sex: Male

DRUGS (10)
  1. OXALIPLATIN. [Suspect]
     Active Substance: OXALIPLATIN
     Indication: COLORECTAL ADENOCARCINOMA
     Route: 065
  2. PERTUZUMAB. [Suspect]
     Active Substance: PERTUZUMAB
     Indication: COLORECTAL ADENOCARCINOMA
     Route: 065
  3. IRINOTECAN [Concomitant]
     Active Substance: IRINOTECAN
     Indication: COLORECTAL ADENOCARCINOMA
     Route: 065
  4. CAPECITABINE. [Suspect]
     Active Substance: CAPECITABINE
     Indication: COLORECTAL ADENOCARCINOMA
     Route: 065
  5. BEVACIZUMAB. [Suspect]
     Active Substance: BEVACIZUMAB
     Indication: COLORECTAL ADENOCARCINOMA
     Route: 065
  6. FLUOROURACIL. [Concomitant]
     Active Substance: FLUOROURACIL
     Indication: COLORECTAL ADENOCARCINOMA
     Route: 065
  7. FOLINIC ACID [Concomitant]
     Active Substance: LEUCOVORIN
     Indication: COLORECTAL ADENOCARCINOMA
     Route: 065
  8. TRASTUZUMAB-EMTANSINE [Suspect]
     Active Substance: ADO-TRASTUZUMAB EMTANSINE
     Indication: COLORECTAL ADENOCARCINOMA
     Route: 065
  9. CETUXIMAB. [Suspect]
     Active Substance: CETUXIMAB
     Indication: COLORECTAL ADENOCARCINOMA
     Route: 065
  10. TRASTUZUMAB. [Suspect]
     Active Substance: TRASTUZUMAB
     Indication: COLORECTAL ADENOCARCINOMA
     Route: 065

REACTIONS (4)
  - Disease progression [Unknown]
  - Colorectal adenocarcinoma [Unknown]
  - Drug resistance [Unknown]
  - Diarrhoea [Unknown]
